FAERS Safety Report 5933550-7 (Version None)
Quarter: 2008Q4

REPORT INFORMATION
  Report Type: 
  Country: None (occurrence: None)
  Receive Date: 20081024
  Receipt Date: 20081006
  Transmission Date: 20090506
  Serious: Yes (Life-Threatening)
  Sender: FDA-Public Use
  Company Number: 1-16735001

PATIENT
  Age: 62 Year
  Sex: Male

DRUGS (1)
  1. AMIODARONE HCL [Suspect]
     Indication: ATRIAL FIBRILLATION
     Dosage: 3.0 GRAMS, INTRAVENOUS
     Route: 042

REACTIONS (4)
  - ELECTROCARDIOGRAM T WAVE ABNORMAL [None]
  - LONG QT SYNDROME [None]
  - TORSADE DE POINTES [None]
  - VENTRICULAR FIBRILLATION [None]
